FAERS Safety Report 5629437-X (Version None)
Quarter: 2008Q1

REPORT INFORMATION
  Report Type: 
  Country: None (occurrence: None)
  Receive Date: 20080215
  Receipt Date: 20080215
  Transmission Date: 20080703
  Serious: Yes (Life-Threatening)
  Sender: FDA-Public Use
  Company Number: None

PATIENT
  Age: 80 Year
  Sex: Male
  Weight: 86.1834 kg

DRUGS (5)
  1. EFFEXOR [Suspect]
     Indication: DEPRESSION
     Dosage: 300 MG DAILY 047
     Dates: start: 20060101
  2. ZANTAC 150 [Concomitant]
  3. ANUSERT [Concomitant]
  4. ADVIL [Concomitant]
  5. ARICEPT [Concomitant]

REACTIONS (1)
  - SUICIDAL IDEATION [None]
